FAERS Safety Report 7288612-1 (Version None)
Quarter: 2011Q1

REPORT INFORMATION
  Report Type: 
  Country: None (occurrence: None)
  Receive Date: 20110208
  Receipt Date: 20110208
  Transmission Date: 20110831
  Serious: No
  Sender: FDA-Public Use
  Company Number: None

PATIENT
  Age: 59 Year
  Sex: Female
  Weight: 89.3586 kg

DRUGS (3)
  1. EFFEXOR XR [Suspect]
     Indication: DEPRESSION
     Dosage: 3 EVERY DAY PO
     Route: 048
     Dates: start: 19920101, end: 20110207
  2. EFFEXOR XR [Suspect]
     Indication: ANXIETY
     Dosage: 3 EVERY DAY PO
     Route: 048
     Dates: start: 19920101, end: 20110207
  3. EFFEXOR XR [Suspect]
     Indication: PANIC ATTACK
     Dosage: 3 EVERY DAY PO
     Route: 048
     Dates: start: 19920101, end: 20110207

REACTIONS (2)
  - PRODUCT SUBSTITUTION ISSUE [None]
  - DRUG INEFFECTIVE [None]
